FAERS Safety Report 7706504-8 (Version None)
Quarter: 2011Q3

REPORT INFORMATION
  Report Type: 
  Country: None (occurrence: None)
  Receive Date: 20110824
  Receipt Date: 20110817
  Transmission Date: 20111222
  Serious: Yes (Other)
  Sender: FDA-Public Use
  Company Number: CN-PFIZER INC-2011189894

PATIENT

DRUGS (2)
  1. CEFOPERAZONE SODIUM [Suspect]
     Indication: INFECTION
     Dosage: 3 G EVERY 12 HOURS
  2. CEFOPERAZONE SODIUM [Suspect]
     Dosage: 3 G EVERY 8 HOURS

REACTIONS (2)
  - MOUTH HAEMORRHAGE [None]
  - GINGIVAL BLEEDING [None]
